FAERS Safety Report 4717717-1 (Version None)
Quarter: 2005Q3

REPORT INFORMATION
  Report Type: 
  Country: None (occurrence: None)
  Receive Date: 20050713
  Receipt Date: 20050401
  Transmission Date: 20060218
  Serious: Yes (Other)
  Sender: FDA-Public Use
  Company Number: HQWYE743106APR05

PATIENT
  Sex: Female

DRUGS (1)
  1. ALAVERT [Suspect]
     Dosage: 1 TABLET DAILY, ORAL
     Route: 048
     Dates: start: 20050301, end: 20050331

REACTIONS (2)
  - MIGRAINE [None]
  - VISUAL DISTURBANCE [None]
